FAERS Safety Report 17979377 (Version 2)
Quarter: 2020Q3

REPORT INFORMATION
  Report Type: Spontaneous
  Country: US (occurrence: US)
  Receive Date: 20200703
  Receipt Date: 20200817
  Transmission Date: 20201103
  Serious: Yes (Hospitalization, Other)
  Sender: FDA-Public Use
  Company Number: US-AMGEN-USASP2020104867

PATIENT
  Age: 85 Year
  Sex: Female
  Weight: 53.97 kg

DRUGS (1)
  1. EVENITY [Suspect]
     Active Substance: ROMOSOZUMAB-AQQG
     Indication: OSTEOPOROSIS POSTMENOPAUSAL
     Dosage: 210 MILLIGRAM, QMO
     Route: 058
     Dates: start: 20200127, end: 20200602

REACTIONS (1)
  - Ischaemic cerebral infarction [Not Recovered/Not Resolved]

NARRATIVE: CASE EVENT DATE: 20200531
